FAERS Safety Report 5166674-5 (Version None)
Quarter: 2006Q4

REPORT INFORMATION
  Report Type: 
  Country: None (occurrence: None)
  Receive Date: 20061207
  Receipt Date: 20061120
  Transmission Date: 20070319
  Serious: Yes (Disabling)
  Sender: FDA-Public Use
  Company Number: DE-AVENTIS-200613397DE

PATIENT
  Age: 79 Year
  Sex: Male
  Weight: 80 kg

DRUGS (2)
  1. FLAGYL [Suspect]
     Indication: PAROTITIS
     Route: 048
     Dates: start: 20061114, end: 20061121
  2. AMOXICILLIN [Concomitant]
     Indication: PAROTITIS
     Dosage: DOSE: NOT REPORTED
     Dates: start: 20060101

REACTIONS (4)
  - PRURITUS [None]
  - RASH GENERALISED [None]
  - URTICARIA [None]
  - URTICARIA GENERALISED [None]
